FAERS Safety Report 7818866-1 (Version None)
Quarter: 2011Q4

REPORT INFORMATION
  Report Type: 
  Country: None (occurrence: None)
  Receive Date: 20111012
  Receipt Date: 20110928
  Transmission Date: 20120403
  Serious: Yes (Hospitalization)
  Sender: FDA-Public Use
  Company Number: BE-006344

PATIENT
  Sex: Male

DRUGS (1)
  1. FIRMAGON [Suspect]
     Dosage: (240 MG 1X SUBCUTANEOUS)
     Route: 058
     Dates: start: 20110920, end: 20110920

REACTIONS (1)
  - ILEUS [None]
